FAERS Safety Report 18672818 (Version 1)
Quarter: 2020Q4

REPORT INFORMATION
  Report Type: Report from Study
  Country: LT (occurrence: LT)
  Receive Date: 20201229
  Receipt Date: 20201229
  Transmission Date: 20210114
  Serious: Yes (Hospitalization)
  Sender: FDA-Public Use
  Company Number: LT-JNJFOC-20191028946

PATIENT
  Age: 36 Year
  Sex: Female
  Weight: 62 kg

DRUGS (10)
  1. PLACEBO [Suspect]
     Active Substance: UNSPECIFIED INGREDIENT
     Indication: SYSTEMIC LUPUS ERYTHEMATOSUS
     Route: 058
     Dates: start: 20181031
  2. ESOMEPRAZOLE. [Concomitant]
     Active Substance: ESOMEPRAZOLE MAGNESIUM
     Route: 048
     Dates: start: 20181030, end: 20190124
  3. PARACETAMOL [Concomitant]
     Active Substance: ACETAMINOPHEN
     Route: 065
     Dates: start: 20191018
  4. CLEMASTINE [Concomitant]
     Active Substance: CLEMASTINE
     Route: 065
     Dates: start: 20191018
  5. MELDONIUM [Concomitant]
     Active Substance: MELDONIUM
     Route: 065
     Dates: start: 20190821
  6. MIRENA [Concomitant]
     Active Substance: LEVONORGESTREL
     Route: 065
     Dates: start: 201801
  7. IVABRADINE [Concomitant]
     Active Substance: IVABRADINE
     Route: 048
     Dates: start: 20190807
  8. PREDNISOLONE. [Concomitant]
     Active Substance: PREDNISOLONE
     Route: 048
     Dates: start: 20180908, end: 20190901
  9. LIVOSIL B                          /08188701/ [Concomitant]
     Route: 048
     Dates: start: 20190510, end: 20190616
  10. MELDONIUM [Concomitant]
     Active Substance: MELDONIUM
     Route: 048
     Dates: start: 20190807, end: 20190820

REACTIONS (1)
  - Systemic lupus erythematosus [Recovered/Resolved]

NARRATIVE: CASE EVENT DATE: 20191014
